FAERS Safety Report 14384866 (Version 1)
Quarter: 2018Q1

REPORT INFORMATION
  Report Type: Spontaneous
  Country: US (occurrence: US)
  Receive Date: 20180115
  Receipt Date: 20180115
  Transmission Date: 20180509
  Serious: Yes (Other)
  Sender: FDA-Public Use
  Company Number: US-SA-2018SA007462

PATIENT
  Age: 64 Year
  Sex: Male

DRUGS (6)
  1. FONDAPARINUX [Suspect]
     Active Substance: FONDAPARINUX
     Indication: CARDIAC ANEURYSM
     Route: 065
  2. FONDAPARINUX [Suspect]
     Active Substance: FONDAPARINUX
     Indication: THROMBOSIS
     Route: 065
  3. WARFARIN SODIUM. [Suspect]
     Active Substance: WARFARIN SODIUM
     Indication: CARDIAC ANEURYSM
     Route: 065
  4. WARFARIN SODIUM. [Suspect]
     Active Substance: WARFARIN SODIUM
     Indication: THROMBOSIS
     Route: 065
  5. ENOXAPARIN SODIUM. [Suspect]
     Active Substance: ENOXAPARIN SODIUM
     Indication: CARDIAC ANEURYSM
     Route: 065
  6. ENOXAPARIN SODIUM. [Suspect]
     Active Substance: ENOXAPARIN SODIUM
     Indication: THROMBOSIS
     Route: 065

REACTIONS (3)
  - Dermatitis bullous [Recovering/Resolving]
  - Blood blister [Recovering/Resolving]
  - Disease progression [Recovering/Resolving]
